FAERS Safety Report 11086581 (Version 1)
Quarter: 2015Q2

REPORT INFORMATION
  Report Type: Spontaneous
  Country: US (occurrence: None)
  Receive Date: 20150430
  Receipt Date: 20150430
  Transmission Date: 20150821
  Serious: Yes (Hospitalization)
  Sender: FDA-Public Use
  Company Number: 2015AP008259

PATIENT
  Age: 18 Year
  Sex: Male
  Weight: 74 kg

DRUGS (5)
  1. GABAPENTIN. [Concomitant]
     Active Substance: GABAPENTIN
  2. PENICILLIN V-K (PHENOXYMETHYLPENICILLIN POTASSIUM) [Concomitant]
  3. FOLIC ACID. [Concomitant]
     Active Substance: FOLIC ACID
  4. MORPHINE (MORPHINE SULFATE) [Concomitant]
     Active Substance: MORPHINE SULFATE
  5. FERRIPROX [Suspect]
     Active Substance: DEFERIPRONE
     Indication: SICKLE CELL ANAEMIA
     Route: 048
     Dates: start: 20140401

REACTIONS (4)
  - Sickle cell anaemia with crisis [None]
  - Rhinorrhoea [None]
  - Bladder pain [None]
  - Diarrhoea [None]

NARRATIVE: CASE EVENT DATE: 20150413
